FAERS Safety Report 8900650 (Version 1)
Quarter: 2012Q4

REPORT INFORMATION
  Report Type: 
  Country: CA (occurrence: CA)
  Receive Date: 20121109
  Receipt Date: 20121109
  Transmission Date: 20130627
  Serious: Yes (Death, Other)
  Sender: FDA-Public Use
  Company Number: PHMT2006CA00819

PATIENT
  Sex: Female

DRUGS (7)
  1. SANDOSTATIN LAR [Suspect]
     Indication: CARCINOID TUMOUR
     Dosage: 30 mg, QMO
     Dates: start: 20050524
  2. CYPROHEPTADINE [Concomitant]
  3. IMDUR [Concomitant]
  4. METOPROLOL [Concomitant]
  5. NITRO [Concomitant]
     Route: 060
  6. OMEPRAZOLE [Concomitant]
  7. SIMVASTATIN [Concomitant]

REACTIONS (16)
  - Death [Fatal]
  - Coma [Unknown]
  - Blood pressure decreased [Unknown]
  - Oedema peripheral [Unknown]
  - Dyspnoea [Not Recovered/Not Resolved]
  - Dizziness [Unknown]
  - Visual field defect [Unknown]
  - Lacrimation increased [Unknown]
  - Skin reaction [Unknown]
  - Flushing [Unknown]
  - Rash [Unknown]
  - Blood glucose increased [Unknown]
  - Diarrhoea [Unknown]
  - Flatulence [Unknown]
  - Injection site pain [Unknown]
  - Asthenia [Unknown]
